FAERS Safety Report 5951823-9 (Version None)
Quarter: 2008Q4

REPORT INFORMATION
  Report Type: 
  Country: None (occurrence: None)
  Receive Date: 20081113
  Receipt Date: 20081110
  Transmission Date: 20090506
  Serious: Yes (Hospitalization)
  Sender: FDA-Public Use
  Company Number: B0543974A

PATIENT
  Age: 67 Year
  Sex: Female
  Weight: 73 kg

DRUGS (2)
  1. TOPOTECAN [Suspect]
     Dosage: 1.305MG THREE TIMES PER WEEK
     Route: 042
     Dates: start: 20080930
  2. CARBOPLATIN [Suspect]
     Dosage: 443.85MG THREE TIMES PER WEEK
     Route: 042
     Dates: start: 20081002

REACTIONS (4)
  - ANAEMIA [None]
  - ASTHENIA [None]
  - DIZZINESS [None]
  - DYSPNOEA [None]
